FAERS Safety Report 21821360 (Version 1)
Quarter: 2023Q1

REPORT INFORMATION
  Report Type: Report from Study
  Country: MX (occurrence: MX)
  Receive Date: 20230105
  Receipt Date: 20230105
  Transmission Date: 20230418
  Serious: Yes (Death, Hospitalization)
  Sender: FDA-Public Use
  Company Number: MX-ABBVIE-4257958

PATIENT
  Sex: Female
  Weight: 55 kg

DRUGS (1)
  1. UPADACITINIB [Suspect]
     Active Substance: UPADACITINIB
     Indication: Rheumatoid arthritis
     Dosage: FORM STRENGTH: 15 MILLIGRAM/EVENT ONSET DATE FOR BRAIN INFARCTION, FEVER, GENERALIZED PAIN, SUSPE...
     Route: 048
     Dates: start: 20221202, end: 20221212

REACTIONS (6)
  - Cerebral infarction [Fatal]
  - Pyrexia [Fatal]
  - Infection [Fatal]
  - Pain [Fatal]
  - Myocardial infarction [Fatal]
  - General physical health deterioration [Unknown]
